FAERS Safety Report 13301778 (Version 1)
Quarter: 2017Q1

REPORT INFORMATION
  Report Type: Spontaneous
  Country: US (occurrence: US)
  Receive Date: 20170307
  Receipt Date: 20170307
  Transmission Date: 20170428
  Serious: No
  Sender: FDA-Public Use
  Company Number: None

PATIENT
  Age: 57 Year
  Sex: Female
  Weight: 69.4 kg

DRUGS (8)
  1. TOPIRAMATE-GENERIC FOR TOPAMAX 25MG [Suspect]
     Active Substance: TOPIRAMATE
     Indication: WEIGHT DECREASED
     Dosage: QUANTITY: 1 TABLET FOR ONE WK, THEN 2 TABLETS THEREAFTER BEDTIME?
     Route: 048
     Dates: start: 20170204, end: 20170220
  2. AXERT [Concomitant]
     Active Substance: ALMOTRIPTAN MALATE
  3. VITAMIN D3 [Concomitant]
     Active Substance: CHOLECALCIFEROL
  4. TOPIRAMATE-GENERIC FOR TOPAMAX 25MG [Suspect]
     Active Substance: TOPIRAMATE
     Indication: NEURALGIA
     Dosage: QUANTITY: 1 TABLET FOR ONE WK, THEN 2 TABLETS THEREAFTER BEDTIME?
     Route: 048
     Dates: start: 20170204, end: 20170220
  5. MULTI VITAMIN [Concomitant]
     Active Substance: VITAMINS
  6. TOPIRAMATE-GENERIC FOR TOPAMAX 25MG [Suspect]
     Active Substance: TOPIRAMATE
     Indication: BACK PAIN
     Dosage: QUANTITY: 1 TABLET FOR ONE WK, THEN 2 TABLETS THEREAFTER BEDTIME?
     Route: 048
     Dates: start: 20170204, end: 20170220
  7. SYNTHROID [Concomitant]
     Active Substance: LEVOTHYROXINE SODIUM
  8. GENERIC XYZAL [Concomitant]

REACTIONS (5)
  - Paraesthesia [None]
  - Terminal insomnia [None]
  - Tremor [None]
  - Blood pressure increased [None]
  - Chest discomfort [None]

NARRATIVE: CASE EVENT DATE: 20170204
